FAERS Safety Report 19436448 (Version 6)
Quarter: 2022Q4

REPORT INFORMATION
  Report Type: Spontaneous
  Country: CA (occurrence: None)
  Receive Date: 20210618
  Receipt Date: 20221229
  Transmission Date: 20230113
  Serious: Yes (Death, Other)
  Sender: FDA-Public Use
  Company Number: CA-AMGEN-CANSP2021051330

PATIENT

DRUGS (121)
  1. METHOTREXATE [Suspect]
     Active Substance: METHOTREXATE
     Indication: Product used for unknown indication
     Route: 064
  2. METHOTREXATE [Suspect]
     Active Substance: METHOTREXATE
     Route: 064
  3. METHOTREXATE [Suspect]
     Active Substance: METHOTREXATE
     Route: 064
  4. METHOTREXATE [Suspect]
     Active Substance: METHOTREXATE
     Route: 064
  5. METHOTREXATE [Suspect]
     Active Substance: METHOTREXATE
     Route: 064
  6. METHOTREXATE [Suspect]
     Active Substance: METHOTREXATE
     Route: 064
  7. METHOTREXATE [Suspect]
     Active Substance: METHOTREXATE
     Route: 064
  8. METHOTREXATE [Suspect]
     Active Substance: METHOTREXATE
     Route: 064
  9. ENBREL [Suspect]
     Active Substance: ETANERCEPT
     Indication: Product used for unknown indication
     Route: 064
  10. XELJANZ [Suspect]
     Active Substance: TOFACITINIB CITRATE
     Indication: Product used for unknown indication
     Route: 064
  11. XELJANZ [Suspect]
     Active Substance: TOFACITINIB CITRATE
     Route: 064
  12. SOLU-MEDROL [Suspect]
     Active Substance: METHYLPREDNISOLONE SODIUM SUCCINATE
     Indication: Product used for unknown indication
     Route: 064
  13. SULFASALAZINE [Suspect]
     Active Substance: SULFASALAZINE
     Indication: Product used for unknown indication
     Route: 064
  14. SULFASALAZINE [Suspect]
     Active Substance: SULFASALAZINE
     Route: 064
  15. RITUXIMAB [Suspect]
     Active Substance: RITUXIMAB
     Indication: Product used for unknown indication
     Route: 064
  16. RITUXIMAB [Suspect]
     Active Substance: RITUXIMAB
     Route: 064
  17. RITUXIMAB [Suspect]
     Active Substance: RITUXIMAB
     Route: 065
  18. RITUXIMAB [Suspect]
     Active Substance: RITUXIMAB
     Route: 064
  19. FOLIC ACID [Suspect]
     Active Substance: FOLIC ACID
     Indication: Product used for unknown indication
     Route: 064
  20. FOLIC ACID [Suspect]
     Active Substance: FOLIC ACID
     Route: 064
  21. FOLIC ACID [Suspect]
     Active Substance: FOLIC ACID
     Route: 064
  22. FOLIC ACID [Suspect]
     Active Substance: FOLIC ACID
     Route: 064
  23. FOLIC ACID [Suspect]
     Active Substance: FOLIC ACID
     Route: 064
  24. FOLIC ACID [Suspect]
     Active Substance: FOLIC ACID
     Route: 064
  25. FOLIC ACID [Suspect]
     Active Substance: FOLIC ACID
     Route: 064
  26. FOLIC ACID [Suspect]
     Active Substance: FOLIC ACID
     Route: 064
  27. FOLIC ACID [Suspect]
     Active Substance: FOLIC ACID
     Route: 064
  28. FOLIC ACID [Suspect]
     Active Substance: FOLIC ACID
     Route: 064
  29. FOLIC ACID [Suspect]
     Active Substance: FOLIC ACID
     Route: 064
  30. ACETAMINOPHEN [Suspect]
     Active Substance: ACETAMINOPHEN
     Indication: Product used for unknown indication
     Route: 064
  31. ACTEMRA [Suspect]
     Active Substance: TOCILIZUMAB
     Indication: Product used for unknown indication
     Route: 064
  32. ADALIMUMAB [Suspect]
     Active Substance: ADALIMUMAB
     Indication: Product used for unknown indication
     Route: 064
  33. ALENDRONATE SODIUM [Suspect]
     Active Substance: ALENDRONATE SODIUM
     Indication: Product used for unknown indication
     Route: 064
  34. ALENDRONATE SODIUM [Suspect]
     Active Substance: ALENDRONATE SODIUM
     Route: 064
  35. PREDNISONE [Suspect]
     Active Substance: PREDNISONE
     Indication: Product used for unknown indication
     Route: 064
  36. ARAVA [Suspect]
     Active Substance: LEFLUNOMIDE
     Indication: Product used for unknown indication
     Route: 064
  37. ARAVA [Suspect]
     Active Substance: LEFLUNOMIDE
     Route: 064
  38. ARAVA [Suspect]
     Active Substance: LEFLUNOMIDE
     Route: 064
  39. CETIRIZINE HYDROCHLORIDE [Suspect]
     Active Substance: CETIRIZINE HYDROCHLORIDE
     Indication: Product used for unknown indication
     Route: 064
  40. CETIRIZINE HYDROCHLORIDE [Suspect]
     Active Substance: CETIRIZINE HYDROCHLORIDE
     Route: 064
  41. CETIRIZINE HYDROCHLORIDE\PSEUDOEPHEDRINE HYDROCHLORIDE [Suspect]
     Active Substance: CETIRIZINE HYDROCHLORIDE\PSEUDOEPHEDRINE HYDROCHLORIDE
     Indication: Product used for unknown indication
     Route: 064
  42. CETIRIZINE HYDROCHLORIDE\PSEUDOEPHEDRINE HYDROCHLORIDE [Suspect]
     Active Substance: CETIRIZINE HYDROCHLORIDE\PSEUDOEPHEDRINE HYDROCHLORIDE
     Route: 064
  43. CIMZIA [Suspect]
     Active Substance: CERTOLIZUMAB PEGOL
     Indication: Product used for unknown indication
     Route: 064
  44. CIMZIA [Suspect]
     Active Substance: CERTOLIZUMAB PEGOL
     Route: 064
  45. CIMZIA [Suspect]
     Active Substance: CERTOLIZUMAB PEGOL
     Route: 064
  46. CIMZIA [Suspect]
     Active Substance: CERTOLIZUMAB PEGOL
     Route: 064
  47. CORTISONE ACETATE [Suspect]
     Active Substance: CORTISONE ACETATE
     Indication: Product used for unknown indication
     Route: 064
  48. CORTISONE ACETATE [Suspect]
     Active Substance: CORTISONE ACETATE
     Route: 064
  49. CORTISONE ACETATE [Suspect]
     Active Substance: CORTISONE ACETATE
     Dosage: UNK DOSE (MILLIGRAM)
     Route: 064
  50. CORTISONE ACETATE [Suspect]
     Active Substance: CORTISONE ACETATE
     Dosage: UNK DOSE (MILLIGRAM)
     Route: 064
  51. CORTISONE ACETATE [Suspect]
     Active Substance: CORTISONE ACETATE
     Dosage: UNK DOSE (MILLIGRAM)
     Route: 064
  52. CORTISONE ACETATE [Suspect]
     Active Substance: CORTISONE ACETATE
     Route: 064
  53. CORTISONE ACETATE [Suspect]
     Active Substance: CORTISONE ACETATE
     Route: 064
  54. DICLOFENAC [Suspect]
     Active Substance: DICLOFENAC
     Indication: Product used for unknown indication
     Route: 064
  55. DICLOFENAC SODIUM [Suspect]
     Active Substance: DICLOFENAC SODIUM
     Indication: Product used for unknown indication
     Route: 064
  56. DICLOFENAC SODIUM [Suspect]
     Active Substance: DICLOFENAC SODIUM
     Route: 065
  57. DICLOFENAC SODIUM [Suspect]
     Active Substance: DICLOFENAC SODIUM
     Route: 064
  58. DIPHENHYDRAMINE HYDROCHLORIDE [Suspect]
     Active Substance: DIPHENHYDRAMINE HYDROCHLORIDE
     Indication: Product used for unknown indication
     Route: 064
  59. DIPHENHYDRAMINE HYDROCHLORIDE [Suspect]
     Active Substance: DIPHENHYDRAMINE HYDROCHLORIDE
     Route: 064
  60. DESOXIMETASONE [Suspect]
     Active Substance: DESOXIMETASONE
     Indication: Product used for unknown indication
     Route: 064
  61. DESOXIMETASONE [Suspect]
     Active Substance: DESOXIMETASONE
     Route: 064
  62. DESOXIMETASONE [Suspect]
     Active Substance: DESOXIMETASONE
     Route: 064
  63. ERELZI [Suspect]
     Active Substance: ETANERCEPT-SZZS
     Indication: Product used for unknown indication
     Route: 064
  64. GOLIMUMAB [Suspect]
     Active Substance: GOLIMUMAB
     Indication: Product used for unknown indication
     Route: 064
  65. FOSAMAX [Suspect]
     Active Substance: ALENDRONATE SODIUM
     Indication: Product used for unknown indication
     Route: 064
  66. FOSAMAX [Suspect]
     Active Substance: ALENDRONATE SODIUM
     Route: 064
  67. FOSAMAX [Suspect]
     Active Substance: ALENDRONATE SODIUM
     Route: 064
  68. FOSAMAX [Suspect]
     Active Substance: ALENDRONATE SODIUM
     Route: 064
  69. HUMIRA [Suspect]
     Active Substance: ADALIMUMAB
     Indication: Product used for unknown indication
     Route: 064
  70. HUMIRA [Suspect]
     Active Substance: ADALIMUMAB
     Route: 064
  71. HUMIRA [Suspect]
     Active Substance: ADALIMUMAB
     Route: 064
  72. HYDROXYCHLOROQUINE [Suspect]
     Active Substance: HYDROXYCHLOROQUINE
     Indication: Product used for unknown indication
     Route: 064
  73. HYDROXYCHLOROQUINE [Suspect]
     Active Substance: HYDROXYCHLOROQUINE
     Route: 064
  74. HYDROXYCHLOROQUINE SULFATE [Suspect]
     Active Substance: HYDROXYCHLOROQUINE SULFATE
     Indication: Product used for unknown indication
     Route: 064
  75. HYDROXYCHLOROQUINE SULFATE [Suspect]
     Active Substance: HYDROXYCHLOROQUINE SULFATE
     Route: 064
  76. HYDROXYCHLOROQUINE SULFATE [Suspect]
     Active Substance: HYDROXYCHLOROQUINE SULFATE
     Route: 064
  77. KEVZARA [Suspect]
     Active Substance: SARILUMAB
     Indication: Product used for unknown indication
     Route: 064
  78. LEFLUNOMIDE [Suspect]
     Active Substance: LEFLUNOMIDE
     Indication: Product used for unknown indication
     Route: 064
  79. LEFLUNOMIDE [Suspect]
     Active Substance: LEFLUNOMIDE
     Route: 064
  80. LEFLUNOMIDE [Suspect]
     Active Substance: LEFLUNOMIDE
     Route: 064
  81. ORENCIA [Suspect]
     Active Substance: ABATACEPT
     Indication: Product used for unknown indication
     Route: 064
  82. ORENCIA [Suspect]
     Active Substance: ABATACEPT
     Route: 064
  83. PHTHALYLSULFATHIAZOLE [Suspect]
     Active Substance: PHTHALYLSULFATHIAZOLE
     Indication: Product used for unknown indication
     Route: 064
  84. PHTHALYLSULFATHIAZOLE [Suspect]
     Active Substance: PHTHALYLSULFATHIAZOLE
     Route: 064
  85. PHTHALYLSULFATHIAZOLE [Suspect]
     Active Substance: PHTHALYLSULFATHIAZOLE
     Route: 065
  86. PHTHALYLSULFATHIAZOLE [Suspect]
     Active Substance: PHTHALYLSULFATHIAZOLE
     Route: 064
  87. PREDNISONE [Suspect]
     Active Substance: PREDNISONE
     Indication: Product used for unknown indication
     Route: 064
  88. PREDNISONE [Suspect]
     Active Substance: PREDNISONE
     Route: 064
  89. PSEUDOEPHEDRINE HYDROCHLORIDE [Suspect]
     Active Substance: PSEUDOEPHEDRINE HYDROCHLORIDE
     Indication: Product used for unknown indication
     Route: 064
  90. REMICADE [Suspect]
     Active Substance: INFLIXIMAB
     Indication: Product used for unknown indication
     Route: 064
  91. REMICADE [Suspect]
     Active Substance: INFLIXIMAB
     Route: 064
  92. REMICADE [Suspect]
     Active Substance: INFLIXIMAB
     Route: 064
  93. REMICADE [Suspect]
     Active Substance: INFLIXIMAB
     Route: 064
  94. SIMPONI [Suspect]
     Active Substance: GOLIMUMAB
     Indication: Product used for unknown indication
     Route: 064
  95. SIMPONI [Suspect]
     Active Substance: GOLIMUMAB
     Route: 064
  96. STELARA [Suspect]
     Active Substance: USTEKINUMAB
     Indication: Product used for unknown indication
     Route: 064
  97. TOCILIZUMAB [Suspect]
     Active Substance: TOCILIZUMAB
     Indication: Product used for unknown indication
     Route: 064
  98. ALENDRONIC ACID [Suspect]
     Active Substance: ALENDRONIC ACID
     Indication: Product used for unknown indication
     Route: 064
  99. OTEZLA [Suspect]
     Active Substance: APREMILAST
     Indication: Product used for unknown indication
     Route: 064
  100. CETIRIZINE HYDROCHLORIDE\PSEUDOEPHEDRINE HYDROCHLORIDE [Suspect]
     Active Substance: CETIRIZINE HYDROCHLORIDE\PSEUDOEPHEDRINE HYDROCHLORIDE
     Indication: Product used for unknown indication
     Route: 064
  101. ACETAMINOPHEN [Suspect]
     Active Substance: ACETAMINOPHEN
     Indication: Product used for unknown indication
     Route: 064
  102. ACETAMINOPHEN [Suspect]
     Active Substance: ACETAMINOPHEN
     Route: 064
  103. METHYLPREDNISOLONE SODIUM SUCCINATE [Suspect]
     Active Substance: METHYLPREDNISOLONE SODIUM SUCCINATE
     Indication: Product used for unknown indication
     Route: 064
  104. HYDROCORTISONE [Suspect]
     Active Substance: HYDROCORTISONE
     Indication: Product used for unknown indication
     Route: 064
  105. HYDROCORTISONE [Suspect]
     Active Substance: HYDROCORTISONE
     Route: 064
  106. INFLIXIMAB [Suspect]
     Active Substance: INFLIXIMAB
     Indication: Product used for unknown indication
     Route: 064
  107. BENADRYL [Suspect]
     Active Substance: DIPHENHYDRAMINE HYDROCHLORIDE
     Indication: Product used for unknown indication
     Route: 064
  108. PLAQUENIL [Suspect]
     Active Substance: HYDROXYCHLOROQUINE SULFATE
     Indication: Product used for unknown indication
     Route: 064
  109. TOPICORT [Suspect]
     Active Substance: DESOXIMETASONE
     Indication: Product used for unknown indication
     Route: 064
  110. PREDNISONE [Suspect]
     Active Substance: PREDNISONE
     Indication: Product used for unknown indication
     Route: 064
  111. HYDROCORTISONE ACETATE\ISOCONAZOLE NITRATE [Suspect]
     Active Substance: HYDROCORTISONE ACETATE\ISOCONAZOLE NITRATE
     Indication: Product used for unknown indication
     Route: 065
  112. CAFFEINE CITRATE [Concomitant]
     Active Substance: CAFFEINE CITRATE
     Route: 064
  113. CODEINE [Concomitant]
     Active Substance: CODEINE
     Route: 064
  114. IBUPROFEN [Concomitant]
     Active Substance: IBUPROFEN
     Route: 064
  115. LISINOPRIL [Concomitant]
     Active Substance: LISINOPRIL
     Route: 064
  116. SULFASALAZINE [Concomitant]
     Active Substance: SULFASALAZINE
     Route: 064
  117. SULFASALAZINE [Concomitant]
     Active Substance: SULFASALAZINE
     Route: 064
  118. VITAMIN D3 [Concomitant]
     Active Substance: CHOLECALCIFEROL
     Route: 064
  119. VITAMIN D3 [Concomitant]
     Active Substance: CHOLECALCIFEROL
     Route: 064
  120. DICLOFENAC POTASSIUM [Concomitant]
     Active Substance: DICLOFENAC POTASSIUM
     Route: 064
  121. TOFACITINIB CITRATE [Concomitant]
     Active Substance: TOFACITINIB CITRATE
     Route: 064

REACTIONS (2)
  - Death neonatal [Fatal]
  - Foetal exposure during pregnancy [Fatal]
